FAERS Safety Report 8873095 (Version 1)
Quarter: 2012Q4

REPORT INFORMATION
  Report Type: 
  Country: US (occurrence: US)
  Receive Date: 20121023
  Receipt Date: 20121023
  Transmission Date: 20130627
  Serious: No
  Sender: FDA-Public Use
  Company Number: US-AMGEN-USASP2011056839

PATIENT
  Age: 45 Year
  Sex: Female
  Weight: 58.5 kg

DRUGS (5)
  1. ENBREL [Suspect]
     Indication: PRODUCT USED FOR UNKNOWN INDICATION
     Dosage: 50 mg, qwk
     Route: 058
  2. NECON 7/7/7 [Concomitant]
  3. CYCLOBENZAPRINE [Concomitant]
     Dosage: 5 mg, UNK
  4. ISOSORB DINIT [Concomitant]
     Dosage: 2.5 mg, UNK
  5. OMEPRAZOLE [Concomitant]
     Dosage: 20 mg, UNK

REACTIONS (4)
  - Musculoskeletal chest pain [Unknown]
  - Pain in jaw [Unknown]
  - Back pain [Unknown]
  - Oropharyngeal pain [Unknown]
